FAERS Safety Report 25942122 (Version 1)
Quarter: 2025Q4

REPORT INFORMATION
  Report Type: Spontaneous
  Country: IL (occurrence: IL)
  Receive Date: 20251020
  Receipt Date: 20251020
  Transmission Date: 20260118
  Serious: Yes (Death, Hospitalization, Other)
  Sender: AMGEN
  Company Number: IL-AMGEN-ISRSP2025203456

PATIENT

DRUGS (4)
  1. ADALIMUMAB [Suspect]
     Active Substance: ADALIMUMAB
     Indication: Product used for unknown indication
     Dosage: UNK
     Route: 065
  2. ADALIMUMAB [Suspect]
     Active Substance: ADALIMUMAB
     Dosage: UNK (RESTARTED)
     Route: 065
  3. ETANERCEPT [Suspect]
     Active Substance: ETANERCEPT
     Indication: Product used for unknown indication
     Dosage: UNK
     Route: 065
  4. ETANERCEPT [Suspect]
     Active Substance: ETANERCEPT
     Dosage: UNK (RESTARTED)
     Route: 065

REACTIONS (18)
  - COVID-19 [Fatal]
  - Road traffic accident [Fatal]
  - Unevaluable event [Unknown]
  - Renal transplant [Unknown]
  - Liver transplant [Unknown]
  - Transplant rejection [Unknown]
  - Clostridium difficile infection [Unknown]
  - Basal cell carcinoma [Unknown]
  - Sepsis [Fatal]
  - Squamous cell carcinoma [Unknown]
  - Therapeutic product effect decreased [Unknown]
  - Adverse event [Unknown]
  - Gastroenteritis [Unknown]
  - Inflammation [Unknown]
  - Viral infection [Unknown]
  - Respiratory tract infection [Unknown]
  - Cellulitis [Unknown]
  - Urinary tract infection [Unknown]
